FAERS Safety Report 16375603 (Version 2)
Quarter: 2019Q2

REPORT INFORMATION
  Report Type: Report from Study
  Country: JP (occurrence: JP)
  Receive Date: 20190531
  Receipt Date: 20190607
  Transmission Date: 20190711
  Serious: Yes (Death, Other)
  Sender: FDA-Public Use
  Company Number: JP-GLAXOSMITHKLINE-JP2019044991

PATIENT
  Age: 8 Decade
  Sex: Male
  Weight: 42 kg

DRUGS (18)
  1. OMEPRAL [Concomitant]
     Active Substance: OMEPRAZOLE
     Indication: GASTRIC ULCER
     Dosage: 40 MG, 1D
     Dates: start: 20161218, end: 20161218
  2. PREDONINE [Suspect]
     Active Substance: PREDNISOLONE
     Indication: LOWER RESPIRATORY TRACT INFECTION FUNGAL
     Dosage: 40 MG, 1D
     Route: 048
     Dates: start: 20161210, end: 20161214
  3. PREDONINE [Suspect]
     Active Substance: PREDNISOLONE
     Indication: CANDIDA INFECTION
  4. FUNGUARD [Suspect]
     Active Substance: MICAFUNGIN SODIUM
     Indication: CANDIDA INFECTION
  5. TIENAM (CILASTATIN SODIUM + IMIPENEM MONOHYDRATE) [Suspect]
     Active Substance: CILASTATIN SODIUM\IMIPENEM
     Indication: CANDIDA INFECTION
  6. LANSOPRAZOLE. [Concomitant]
     Active Substance: LANSOPRAZOLE
     Dosage: UNK
  7. UMECLIDINIUM BROMIDE [Suspect]
     Active Substance: UMECLIDINIUM BROMIDE
     Indication: CHRONIC OBSTRUCTIVE PULMONARY DISEASE
     Dosage: 62.5 ?G, QD
     Route: 055
     Dates: start: 20161208, end: 201612
  8. MAGNESIUM OXIDE. [Concomitant]
     Active Substance: MAGNESIUM OXIDE
     Dosage: UNK
  9. UNIPHYL LA [Concomitant]
     Active Substance: THEOPHYLLINE ANHYDROUS
     Dosage: UNK
  10. TIENAM (CILASTATIN SODIUM + IMIPENEM MONOHYDRATE) [Suspect]
     Active Substance: CILASTATIN SODIUM\IMIPENEM
     Indication: LOWER RESPIRATORY TRACT INFECTION FUNGAL
     Dosage: 1.0 G, 1D
     Route: 065
     Dates: start: 20161210, end: 20161218
  11. UMECLIDINIUM BROMIDE [Suspect]
     Active Substance: UMECLIDINIUM BROMIDE
     Indication: EMPHYSEMA
  12. VANCOMYCIN HYDROCHLORIDE. [Suspect]
     Active Substance: VANCOMYCIN HYDROCHLORIDE
     Indication: LOWER RESPIRATORY TRACT INFECTION FUNGAL
     Dosage: 1.5 G, 1D
     Route: 065
     Dates: start: 20161210, end: 20161218
  13. NEOPHAGEN [Concomitant]
     Active Substance: GLYCYRRHIZIN
     Indication: HEPATIC FUNCTION ABNORMAL
     Dosage: 40 ML, 1D
     Dates: start: 20161212, end: 20161218
  14. SERETIDE [Suspect]
     Active Substance: FLUTICASONE PROPIONATE\SALMETEROL XINAFOATE
     Indication: EMPHYSEMA
  15. FUNGUARD [Suspect]
     Active Substance: MICAFUNGIN SODIUM
     Indication: LOWER RESPIRATORY TRACT INFECTION FUNGAL
     Dosage: 150 MG, 1D
     Route: 041
     Dates: start: 20161209, end: 20161218
  16. SERETIDE [Suspect]
     Active Substance: FLUTICASONE PROPIONATE\SALMETEROL XINAFOATE
     Indication: CHRONIC OBSTRUCTIVE PULMONARY DISEASE
     Dosage: UNK
     Route: 055
     Dates: end: 201612
  17. VANCOMYCIN HYDROCHLORIDE. [Suspect]
     Active Substance: VANCOMYCIN HYDROCHLORIDE
     Indication: CANDIDA INFECTION
  18. MINOMYCIN [Concomitant]
     Active Substance: MINOCYCLINE HYDROCHLORIDE
     Dosage: 200 MG, 1D
     Dates: end: 20161209

REACTIONS (6)
  - Candida infection [Not Recovered/Not Resolved]
  - Respiratory failure [Fatal]
  - Gastric ulcer [Not Recovered/Not Resolved]
  - Hepatic function abnormal [Not Recovered/Not Resolved]
  - Lower respiratory tract infection fungal [Fatal]
  - Pneumonia [Fatal]

NARRATIVE: CASE EVENT DATE: 20161208
